FAERS Safety Report 5125889-2 (Version None)
Quarter: 2006Q4

REPORT INFORMATION
  Report Type: 
  Country: None (occurrence: None)
  Receive Date: 20061012
  Receipt Date: 20060919
  Transmission Date: 20070319
  Serious: Yes (Hospitalization)
  Sender: FDA-Public Use
  Company Number: TH-GLAXOSMITHKLINE-B0439346A

PATIENT
  Age: 17 Year
  Sex: Male
  Weight: 52 kg

DRUGS (1)
  1. QUOMEM [Suspect]
     Indication: SMOKING CESSATION THERAPY
     Dosage: 150MG SEE DOSAGE TEXT
     Route: 065
     Dates: start: 20060906, end: 20060913

REACTIONS (4)
  - CONTUSION [None]
  - CONVULSION [None]
  - LOSS OF CONSCIOUSNESS [None]
  - MUSCULOSKELETAL STIFFNESS [None]
